FAERS Safety Report 15237767 (Version 1)
Quarter: 2018Q3

REPORT INFORMATION
  Report Type: Spontaneous
  Country: US (occurrence: US)
  Receive Date: 20180803
  Receipt Date: 20180803
  Transmission Date: 20181010
  Serious: No
  Sender: FDA-Public Use
  Company Number: US-TAKEDA-2018TUS023574

PATIENT
  Age: 42 Year
  Sex: Female
  Weight: 103.86 kg

DRUGS (13)
  1. RANITIDINE. [Concomitant]
     Active Substance: RANITIDINE
     Dosage: 150 MG, BID
     Route: 048
  2. ZINC OXIDE. [Concomitant]
     Active Substance: ZINC OXIDE
     Dosage: UNK
  3. ENTYVIO [Suspect]
     Active Substance: VEDOLIZUMAB
     Indication: CROHN^S DISEASE
     Dosage: 300 MG, UNK
     Route: 042
     Dates: start: 201705
  4. COUMADIN [Concomitant]
     Active Substance: WARFARIN SODIUM
     Indication: PULMONARY EMBOLISM
     Dosage: UNK
     Route: 048
  5. AZATHIOPRINE. [Concomitant]
     Active Substance: AZATHIOPRINE
     Indication: CROHN^S DISEASE
     Dosage: UNK UNK, QD
     Route: 048
  6. ALBUTEROL                          /00139501/ [Concomitant]
     Active Substance: ALBUTEROL
     Dosage: UNK
     Route: 048
  7. MIRENA [Concomitant]
     Active Substance: LEVONORGESTREL
     Indication: CONTRACEPTION
     Dosage: UNK
     Route: 015
  8. IMURAN [Concomitant]
     Active Substance: AZATHIOPRINE
     Indication: CROHN^S DISEASE
     Dosage: UNK
     Route: 048
  9. CETIRIZINE [Concomitant]
     Active Substance: CETIRIZINE HYDROCHLORIDE
     Indication: HYPERSENSITIVITY
     Dosage: 10 MG, QD
     Route: 048
  10. FERROUS SULFATE. [Concomitant]
     Active Substance: FERROUS SULFATE
     Indication: MINERAL SUPPLEMENTATION
     Dosage: 325 MG, QD
     Route: 048
  11. RIVAROXABAN [Concomitant]
     Active Substance: RIVAROXABAN
     Indication: ANTICOAGULANT THERAPY
     Dosage: 20 MG, QD
     Route: 048
  12. VENOFER [Concomitant]
     Active Substance: IRON SUCROSE
     Indication: MINERAL SUPPLEMENTATION
     Dosage: 300 MG, UNK
     Route: 042
     Dates: start: 201807
  13. LORAZEPAM. [Concomitant]
     Active Substance: LORAZEPAM
     Indication: ANXIETY
     Dosage: UNK
     Route: 048

REACTIONS (6)
  - Fungal infection [Unknown]
  - Bacterial vaginosis [Unknown]
  - Syncope [Unknown]
  - Nausea [Unknown]
  - Cytomegalovirus colitis [Recovered/Resolved]
  - Pregnancy [Unknown]

NARRATIVE: CASE EVENT DATE: 20180713
